FAERS Safety Report 7742911-5 (Version None)
Quarter: 2011Q3

REPORT INFORMATION
  Report Type: 
  Country: None (occurrence: None)
  Receive Date: 20110912
  Receipt Date: 20110829
  Transmission Date: 20111222
  Serious: Yes (Hospitalization)
  Sender: FDA-Public Use
  Company Number: US-ELI_LILLY_AND_COMPANY-US201012001610

PATIENT
  Sex: Female
  Weight: 109.8 kg

DRUGS (6)
  1. METFORMIN HCL [Concomitant]
     Dosage: UNK, UNKNOWN
     Route: 065
  2. CYMBALTA [Concomitant]
     Dosage: UNK, UNKNOWN
     Route: 065
  3. FORTEO [Suspect]
     Indication: OSTEOPOROSIS
     Dosage: 20 UG, DAILY (1/D)
     Route: 058
     Dates: start: 20100701
  4. FORTEO [Suspect]
     Dosage: 20 UG, QD
     Route: 058
  5. LANTUS [Concomitant]
     Dosage: UNK, UNKNOWN
     Route: 065
  6. PENTASA [Concomitant]
     Dosage: UNK, UNKNOWN
     Route: 065

REACTIONS (5)
  - HOSPITALISATION [None]
  - SHUNT INFECTION [None]
  - URINARY TRACT INFECTION [None]
  - BACK PAIN [None]
  - ARTHRALGIA [None]
